FAERS Safety Report 25350045 (Version 3)
Quarter: 2025Q3

REPORT INFORMATION
  Report Type: Spontaneous
  Country: US (occurrence: US)
  Receive Date: 20250523
  Receipt Date: 20250717
  Transmission Date: 20251020
  Serious: No
  Sender: SANOFI AVENTIS
  Company Number: US-SA-2025SA145890

PATIENT
  Age: 38 Year
  Sex: Female

DRUGS (2)
  1. DUPIXENT [Suspect]
     Active Substance: DUPILUMAB
     Indication: Dermatitis atopic
     Route: 058
     Dates: start: 202505, end: 202505
  2. DUPIXENT [Suspect]
     Active Substance: DUPILUMAB
     Dosage: 300 MG, QOW
     Route: 058
     Dates: start: 202505

REACTIONS (3)
  - Paraesthesia [Recovering/Resolving]
  - Nausea [Recovering/Resolving]
  - Dermatitis atopic [Unknown]

NARRATIVE: CASE EVENT DATE: 20250501
